FAERS Safety Report 9054722 (Version 2)
Quarter: 2013Q3

REPORT INFORMATION
  Report Type: Report from Study
  Country: JP (occurrence: JP)
  Receive Date: 20130208
  Receipt Date: 20130703
  Transmission Date: 20140515
  Serious: Yes (Other)
  Sender: FDA-Public Use
  Company Number: JP-VERTEX PHARMACEUTICALS INC.-2013-001705

PATIENT
  Age: 56 Year
  Sex: Male

DRUGS (26)
  1. VX-950 (TELAPREVIR) [Suspect]
     Indication: CHRONIC HEPATITIS C
     Dosage: 2250 MG, QD
     Route: 048
     Dates: start: 20120608, end: 20120622
  2. VX-950 (TELAPREVIR) [Suspect]
     Dosage: 2250 MG, QD
     Route: 048
     Dates: start: 20120629, end: 20120719
  3. VX-950 (TELAPREVIR) [Suspect]
     Dosage: 2250 MG, QD
     Route: 048
     Dates: start: 20120727, end: 20120830
  4. VX-950 (TELAPREVIR) [Suspect]
     Dosage: 2250 MG, QD
     Route: 048
     Dates: start: 20120906, end: 20120919
  5. MICARDIS [Suspect]
     Indication: HYPERTENSION
     Dosage: 40 MG, QD
     Route: 048
  6. REBETOL [Suspect]
     Indication: CHRONIC HEPATITIS C
     Dosage: 800 MG, QD
     Route: 048
     Dates: start: 20120608, end: 20120622
  7. REBETOL [Suspect]
     Dosage: 800 MG, QD
     Route: 048
     Dates: start: 20120629, end: 20120719
  8. REBETOL [Suspect]
     Dosage: 400 MG, QD
     Route: 048
     Dates: start: 20120727, end: 20120823
  9. REBETOL [Suspect]
     Dosage: 200 MG, QD
     Route: 048
     Dates: start: 20120824, end: 20120830
  10. REBETOL [Suspect]
     Dosage: 400 MG, QD
     Route: 048
     Dates: start: 20121004
  11. PEGINTRON [Suspect]
     Indication: CHRONIC HEPATITIS C
     Dosage: 0.7 ?G/KG, QW
     Route: 058
     Dates: start: 20120608, end: 20120608
  12. PEGINTRON [Suspect]
     Dosage: 0.6 ?G/KG, QW
     Route: 058
     Dates: start: 20120615, end: 20120615
  13. PEGINTRON [Suspect]
     Dosage: 0.4 ?G/KG, QW
     Route: 058
     Dates: start: 20120629, end: 20120713
  14. PEGINTRON [Suspect]
     Dosage: 0.4 ?G/KG, QW
     Route: 058
     Dates: start: 20120727
  15. PEGINTRON [Suspect]
     Dosage: 0.44 ?G/KG, QW
     Route: 058
  16. PURSENNID [Concomitant]
     Dosage: UNK, PRN
     Route: 048
     Dates: start: 20120612, end: 20120612
  17. ATARAX-P [Concomitant]
     Dosage: 1 DF, PRN
     Route: 051
     Dates: start: 20120613, end: 20120613
  18. ADONA [Concomitant]
     Dosage: 2 DF, QD
     Route: 048
     Dates: start: 20120613, end: 20120613
  19. SOSEGON [Concomitant]
     Dosage: 1 DF, QD
     Route: 051
     Dates: start: 20120613, end: 20120613
  20. LACTEC G [Concomitant]
     Dosage: 1 DF, QD
     Route: 051
     Dates: start: 20120613, end: 20120613
  21. ATROPINE [Concomitant]
     Dosage: 1 DF, QD
     Route: 051
     Dates: start: 20120613, end: 20120613
  22. GLUCOSE [Concomitant]
     Dosage: 2 DF, QD
     Route: 051
     Dates: start: 20120613, end: 20120613
  23. SOLDEM 3A [Concomitant]
     Dosage: 1 DF, QD
     Route: 051
     Dates: start: 20120613, end: 20120614
  24. RASENAZOLIN [Concomitant]
     Dosage: 2 DF, QD
     Route: 051
     Dates: start: 20120613, end: 20120613
  25. JANUVIA [Concomitant]
     Dosage: 50 MG, QD
     Route: 048
  26. TRANSAMIN [Concomitant]
     Dosage: 1 DF, QD
     Route: 051
     Dates: start: 20120613, end: 20120614

REACTIONS (1)
  - Neutrophil count decreased [Recovered/Resolved]
